FAERS Safety Report 6446818-5 (Version None)
Quarter: 2009Q4

REPORT INFORMATION
  Report Type: 
  Country: None (occurrence: None)
  Receive Date: 20091119
  Receipt Date: 20091116
  Transmission Date: 20100525
  Serious: Yes (Death, Hospitalization)
  Sender: FDA-Public Use
  Company Number: PHHY2009FR50266

PATIENT
  Sex: Male

DRUGS (22)
  1. ZOMETA [Suspect]
     Indication: MULTIPLE MYELOMA
     Dosage: UNK
     Route: 042
     Dates: start: 20040101, end: 20050601
  2. DEXAMETHASONE [Suspect]
     Indication: MULTIPLE MYELOMA
     Dosage: UNK
     Route: 042
     Dates: start: 20080301, end: 20080801
  3. DEXAMETHASONE [Suspect]
     Dosage: UNK
     Route: 042
     Dates: start: 20090101, end: 20090501
  4. CORTANCYL [Suspect]
     Indication: MULTIPLE MYELOMA
     Dosage: UNK
     Route: 048
     Dates: start: 20040101, end: 20050601
  5. CORTANCYL [Suspect]
     Dosage: UNK
     Route: 048
     Dates: start: 20060401, end: 20061001
  6. ALKERAN [Suspect]
     Indication: MULTIPLE MYELOMA
     Dosage: UNK
     Route: 042
     Dates: start: 20040101, end: 20050601
  7. ALKERAN [Suspect]
     Dosage: UNK
     Route: 042
     Dates: start: 20060401, end: 20061001
  8. ALKERAN [Suspect]
     Dosage: UNK
     Route: 042
     Dates: start: 20061201, end: 20070501
  9. LYTOS [Suspect]
     Indication: MULTIPLE MYELOMA
     Dosage: UNK
     Dates: start: 20060401, end: 20061001
  10. LYTOS [Suspect]
     Dosage: UNK
     Dates: start: 20061201, end: 20070501
  11. LYTOS [Suspect]
     Dosage: UNK
     Dates: start: 20080301, end: 20080801
  12. LYTOS [Suspect]
     Dosage: UNK
     Dates: start: 20090101, end: 20090501
  13. THALIDOMIDE [Suspect]
     Indication: MULTIPLE MYELOMA
     Dosage: UNK
     Dates: start: 20061201, end: 20070301
  14. THALIDOMIDE [Suspect]
     Dosage: UNK
     Dates: start: 20080301, end: 20080801
  15. THALIDOMIDE [Suspect]
     Dosage: UNK
     Dates: start: 20090101, end: 20090501
  16. BISOPROLOL FUMARATE [Concomitant]
     Indication: ATRIAL FIBRILLATION
     Dosage: UNK
     Route: 048
     Dates: start: 20040101, end: 20090101
  17. PREVISCAN [Concomitant]
     Indication: ATRIAL FIBRILLATION
     Dosage: UNK
     Route: 048
     Dates: start: 20040101, end: 20090101
  18. CORDARONE [Concomitant]
     Indication: ATRIAL FIBRILLATION
     Dosage: UNK
     Route: 048
     Dates: start: 20040101, end: 20090101
  19. EPOETIN [Concomitant]
     Dosage: UNK
     Dates: start: 20040101, end: 20050601
  20. EPOETIN [Concomitant]
     Dosage: UNK
     Dates: start: 20060401, end: 20061001
  21. EPOETIN [Concomitant]
     Dosage: UNK
     Dates: start: 20061201, end: 20070501
  22. EPOETIN [Concomitant]
     Dosage: UNK
     Dates: start: 20080301, end: 20080801

REACTIONS (8)
  - DENTAL PROSTHESIS PLACEMENT [None]
  - EPISTAXIS [None]
  - LYMPHADENOPATHY [None]
  - MULTIPLE MYELOMA [None]
  - ORAL CAVITY FISTULA [None]
  - OSTEONECROSIS [None]
  - PLASMACYTOMA [None]
  - UPPER AIRWAY OBSTRUCTION [None]
